FAERS Safety Report 20147740 (Version 1)
Quarter: 2021Q4

REPORT INFORMATION
  Report Type: Report from Study
  Country: KR (occurrence: KR)
  Receive Date: 20211203
  Receipt Date: 20211203
  Transmission Date: 20220304
  Serious: Yes (Hospitalization)
  Sender: FDA-Public Use
  Company Number: KR-SEATTLE GENETICS-2021SGN06150

PATIENT
  Age: 83 Year
  Sex: Male
  Weight: 48.7 kg

DRUGS (16)
  1. BRENTUXIMAB VEDOTIN [Suspect]
     Active Substance: BRENTUXIMAB VEDOTIN
     Indication: Diffuse large B-cell lymphoma
     Dosage: UNK
     Route: 042
     Dates: start: 20210902, end: 20210923
  2. RITUXIMAB [Suspect]
     Active Substance: RITUXIMAB
     Indication: Diffuse large B-cell lymphoma
     Dosage: UNK
     Route: 042
     Dates: start: 20210902, end: 20210923
  3. LENALIDOMIDE [Suspect]
     Active Substance: LENALIDOMIDE
     Indication: Diffuse large B-cell lymphoma
     Dosage: UNK
     Route: 048
     Dates: start: 20210902, end: 20211019
  4. HARNAL [Concomitant]
     Active Substance: TAMSULOSIN HYDROCHLORIDE
     Indication: Dysuria
     Dosage: 0.2 MG
     Dates: start: 20200930
  5. PRUCALOPRIDE SUCCINATE [Concomitant]
     Active Substance: PRUCALOPRIDE SUCCINATE
     Indication: Constipation
     Dosage: 2 MG
     Dates: start: 20210113
  6. LANSOPRAZOLE [Concomitant]
     Active Substance: LANSOPRAZOLE
     Indication: Gastrointestinal disorder
     Dosage: 15 MG
     Dates: start: 20201012
  7. FOLIC ACID [Concomitant]
     Active Substance: FOLIC ACID
     Indication: Vitamin supplementation
     Dosage: 1 MG
     Dates: start: 20201008
  8. ENTECAVIR [Concomitant]
     Active Substance: ENTECAVIR
     Indication: Hepatitis B
     Dosage: 0.5 MG
     Dates: start: 20210813
  9. DESOWEN [Concomitant]
     Active Substance: DESONIDE
     Indication: Pruritus
     Dosage: 0.05% LOTION, PRN
     Dates: start: 20211020
  10. HEXAMEDIN [Concomitant]
     Indication: Infection prophylaxis
     Dosage: SOLN 0.12%, PRN
     Dates: start: 20211110
  11. LENOGRASTIM [Concomitant]
     Active Substance: LENOGRASTIM
     Indication: Neutropenia
     Dosage: 250 ?G
     Dates: start: 20211110, end: 20211110
  12. DUPHALAC [Concomitant]
     Active Substance: LACTULOSE
     Indication: Constipation
     Dosage: 15 ML
     Dates: start: 20211110, end: 20211110
  13. EGAFUSIN [Concomitant]
     Indication: Supportive care
     Dosage: 500 ML
     Dates: start: 20211110, end: 20211110
  14. PENIRAMIN [Concomitant]
     Indication: Prophylaxis
     Dosage: 4 MG
     Dates: start: 20211111, end: 20211111
  15. PENIRAMIN [Concomitant]
     Dosage: 4 MG
     Dates: start: 20211116, end: 20211116
  16. SUPRAX [CEFOTAXIME SODIUM] [Concomitant]
     Indication: Antibiotic prophylaxis
     Dosage: 100 MG
     Dates: start: 20211115

REACTIONS (1)
  - Herpes zoster [Recovering/Resolving]

NARRATIVE: CASE EVENT DATE: 20211124
